FAERS Safety Report 5627321-9 (Version None)
Quarter: 2008Q1

REPORT INFORMATION
  Report Type: 
  Country: None (occurrence: None)
  Receive Date: 20080215
  Receipt Date: 20080204
  Transmission Date: 20080703
  Serious: Yes (Other)
  Sender: FDA-Public Use
  Company Number: US-JNJFOC-20080201045

PATIENT
  Sex: Male
  Weight: 3.67 kg

DRUGS (3)
  1. TOPAMAX [Suspect]
     Indication: DRUG EXPOSURE DURING PREGNANCY
  2. CLARITIN [Concomitant]
     Indication: DRUG EXPOSURE DURING PREGNANCY
  3. VALTREX [Concomitant]
     Indication: DRUG EXPOSURE DURING PREGNANCY

REACTIONS (1)
  - TALIPES [None]
